FAERS Safety Report 5929524-2 (Version None)
Quarter: 2008Q4

REPORT INFORMATION
  Report Type: 
  Country: None (occurrence: None)
  Receive Date: 20081024
  Receipt Date: 20081021
  Transmission Date: 20090506
  Serious: Yes (Hospitalization, Disabling)
  Sender: FDA-Public Use
  Company Number: B0534910A

PATIENT
  Age: 12 Year
  Sex: Male

DRUGS (3)
  1. ALKERAN [Suspect]
     Indication: ALLOGENIC BONE MARROW TRANSPLANTATION THERAPY
     Dosage: 60MG PER DAY
     Route: 042
     Dates: start: 20010209, end: 20010211
  2. TOTAL BODY IRRADIATION [Suspect]
     Indication: MYELOID LEUKAEMIA
  3. CHEMOTHERAPY [Concomitant]

REACTIONS (4)
  - BONE NEOPLASM [None]
  - BONE SARCOMA [None]
  - JOINT SWELLING [None]
  - PAIN IN EXTREMITY [None]
